FAERS Safety Report 6032275-X (Version None)
Quarter: 2009Q1

REPORT INFORMATION
  Report Type: 
  Country: None (occurrence: None)
  Receive Date: 20090107
  Receipt Date: 20081229
  Transmission Date: 20090719
  Serious: Yes (Death, Hospitalization, Other)
  Sender: FDA-Public Use
  Company Number: 2008SP023833

PATIENT
  Age: 65 Year
  Sex: Male
  Weight: 118 kg

DRUGS (11)
  1. TEMODAR [Suspect]
     Indication: GLIOBLASTOMA MULTIFORME
     Dosage: PO; 180 MG; QD; PO
     Route: 048
     Dates: start: 20070910, end: 20070930
  2. TEMODAR [Suspect]
     Indication: GLIOBLASTOMA MULTIFORME
     Dosage: PO; 180 MG; QD; PO
     Route: 048
     Dates: start: 20070523
  3. DECADRON [Suspect]
     Indication: BRAIN OEDEMA
     Dosage: 4 MG; TID;
     Dates: start: 20071010
  4. METOPROLOL TARTRATE [Suspect]
     Indication: DRUG USE FOR UNKNOWN INDICATION
  5. METFORMIN [Suspect]
     Indication: DRUG USE FOR UNKNOWN INDICATION
  6. LEVAQUIN [Suspect]
     Indication: DRUG USE FOR UNKNOWN INDICATION
  7. CALCIUM [Concomitant]
  8. FERROUS SULFATE TAB [Concomitant]
  9. FUROSEMIDE [Concomitant]
  10. KEPPRA [Concomitant]
  11. VYTORIN [Concomitant]

REACTIONS (14)
  - APHASIA [None]
  - CARDIO-RESPIRATORY ARREST [None]
  - DEPRESSED LEVEL OF CONSCIOUSNESS [None]
  - HYPOGLYCAEMIA [None]
  - HYPOPHAGIA [None]
  - HYPOTENSION [None]
  - LYMPHOPENIA [None]
  - NEUTROPENIA [None]
  - PERIPHERAL COLDNESS [None]
  - PNEUMONIA [None]
  - PULMONARY MASS [None]
  - RESPIRATORY DISTRESS [None]
  - SEPSIS [None]
  - SOMNOLENCE [None]
